FAERS Safety Report 8351449 (Version 2)
Quarter: 2012Q4

REPORT INFORMATION
  Report Type: 
  Country: US (occurrence: US)
  Receive Date: 20120124
  Receipt Date: 20121206
  Transmission Date: 20130627
  Serious: Yes (Hospitalization, Other)
  Sender: FDA-Public Use
  Company Number: US-ROCHE-803154

PATIENT
  Age: 15 Year
  Sex: Male
  Weight: 79.45 kg

DRUGS (3)
  1. ACCUTANE [Suspect]
     Indication: ACNE
     Route: 065
     Dates: start: 200003, end: 200008
  2. ACCUTANE [Suspect]
     Route: 065
     Dates: start: 200103, end: 200108
  3. ACCUTANE [Suspect]
     Route: 065
     Dates: start: 200407, end: 200412

REACTIONS (9)
  - Crohn^s disease [Unknown]
  - Ileal perforation [Unknown]
  - Emotional distress [Unknown]
  - Depression [Unknown]
  - Xerosis [Unknown]
  - Cheilitis [Unknown]
  - Eczema [Unknown]
  - Dry skin [Unknown]
  - Lip dry [Unknown]
